FAERS Safety Report 7595626-0 (Version None)
Quarter: 2011Q3

REPORT INFORMATION
  Report Type: 
  Country: None (occurrence: None)
  Receive Date: 20110707
  Receipt Date: 20110627
  Transmission Date: 20111222
  Serious: Yes (Life-Threatening)
  Sender: FDA-Public Use
  Company Number: US-JNJFOC-20110509875

PATIENT
  Sex: Female
  Weight: 63.5 kg

DRUGS (4)
  1. PREDNISONE [Concomitant]
  2. METHOTREXATE [Concomitant]
  3. TRAMADOL HCL [Concomitant]
  4. REMICADE [Suspect]
     Indication: RHEUMATOID ARTHRITIS
     Dosage: 100MG (5 VIALS)
     Route: 042
     Dates: start: 20080101

REACTIONS (1)
  - MENINGITIS CRYPTOCOCCAL [None]
